FAERS Safety Report 9885360 (Version 1)
Quarter: 2014Q1

REPORT INFORMATION
  Report Type: Spontaneous
  Country: US (occurrence: US)
  Receive Date: 20140210
  Receipt Date: 20140210
  Transmission Date: 20141002
  Serious: No
  Sender: FDA-Public Use
  Company Number: US-PFIZER INC-2014037331

PATIENT
  Age: 31 Year
  Sex: Female
  Weight: 53.5 kg

DRUGS (2)
  1. PRISTIQ [Suspect]
     Dosage: 100 MG, DAILY
     Dates: start: 201304, end: 201401
  2. ALPRAZOLAM [Concomitant]
     Indication: PANIC ATTACK
     Dosage: 1 MG, 2X/DAY

REACTIONS (4)
  - Night sweats [Unknown]
  - Nausea [Unknown]
  - Paraesthesia [Unknown]
  - Disorientation [Unknown]
